FAERS Safety Report 23740748 (Version 3)
Quarter: 2024Q3

REPORT INFORMATION
  Report Type: Report from Study
  Country: IT (occurrence: IT)
  Receive Date: 20240415
  Receipt Date: 20240808
  Transmission Date: 20241017
  Serious: Yes (Other)
  Sender: NOVARTIS
  Company Number: IT-002147023-NVSC2023IT270054

PATIENT
  Age: 58 Year
  Sex: Female

DRUGS (2)
  1. COSENTYX [Suspect]
     Active Substance: SECUKINUMAB
     Indication: Psoriasis
     Dosage: 300 MG, QMO (EVERY 28 DAYS)
     Route: 058
     Dates: start: 20210531
  2. COSENTYX [Suspect]
     Active Substance: SECUKINUMAB
     Indication: Psoriatic arthropathy

REACTIONS (11)
  - Pneumonia [Unknown]
  - Pain [Unknown]
  - Stress [Unknown]
  - Muscle spasms [Unknown]
  - Blood cholesterol decreased [Unknown]
  - Psoriasis [Unknown]
  - Skin burning sensation [Unknown]
  - Erythema [Unknown]
  - Discomfort [Unknown]
  - Pruritus [Unknown]
  - Bronchitis [Recovered/Resolved]

NARRATIVE: CASE EVENT DATE: 20240311
